FAERS Safety Report 8908107 (Version 1)
Quarter: 2012Q4

REPORT INFORMATION
  Report Type: 
  Country: ES (occurrence: ES)
  Receive Date: 20121114
  Receipt Date: 20121114
  Transmission Date: 20130627
  Serious: Yes (Hospitalization)
  Sender: FDA-Public Use
  Company Number: PHHY2012ES104018

PATIENT
  Age: 90 Year
  Sex: Female

DRUGS (8)
  1. SINTROM [Suspect]
     Dosage: 4 mg, UNK
     Dates: start: 2008
  2. EXELON [Suspect]
     Route: 062
  3. CANDESARTAN [Concomitant]
  4. AMBROXOL [Concomitant]
  5. LORMETAZEPAM [Concomitant]
  6. ALPROZOLAM [Concomitant]
  7. TROXERUTIN [Concomitant]
  8. SIMVASTATIN [Concomitant]

REACTIONS (6)
  - Diarrhoea [Recovering/Resolving]
  - Asthenia [Recovering/Resolving]
  - Somnolence [Recovering/Resolving]
  - Haematuria [Recovering/Resolving]
  - International normalised ratio increased [Recovering/Resolving]
  - Overdose [Recovering/Resolving]
